FAERS Safety Report 21059114 (Version 10)
Quarter: 2023Q2

REPORT INFORMATION
  Report Type: Spontaneous
  Country: JP (occurrence: JP)
  Receive Date: 20220708
  Receipt Date: 20230414
  Transmission Date: 20230721
  Serious: Yes (Hospitalization, Other)
  Sender: FDA-Public Use
  Company Number: JP-ONO-2022JP018371

PATIENT
  Age: 65 Year
  Sex: Male
  Weight: 64 kg

DRUGS (34)
  1. YERVOY [Suspect]
     Active Substance: IPILIMUMAB
     Indication: Non-small cell lung cancer recurrent
     Dosage: NUMBER OF ADMINISTRATIONS: 2 TIMES
     Route: 041
     Dates: start: 20220531, end: 20220531
  2. YERVOY [Suspect]
     Active Substance: IPILIMUMAB
     Route: 041
     Dates: start: 20221021
  3. OPDIVO [Suspect]
     Active Substance: NIVOLUMAB
     Indication: Non-small cell lung cancer recurrent
     Dosage: NUMBER OF ADMINISTRATIONS: 4 TIMES
     Route: 041
     Dates: start: 20220531, end: 20220622
  4. OPDIVO [Suspect]
     Active Substance: NIVOLUMAB
     Route: 041
     Dates: start: 20220831
  5. OPDIVO [Suspect]
     Active Substance: NIVOLUMAB
     Route: 041
     Dates: start: 20221021
  6. OPDIVO [Suspect]
     Active Substance: NIVOLUMAB
     Route: 041
     Dates: start: 20230210
  7. CARBOPLATIN [Suspect]
     Active Substance: CARBOPLATIN
     Indication: Non-small cell lung cancer recurrent
     Dates: start: 20220531, end: 20220622
  8. ALIMTA [Suspect]
     Active Substance: PEMETREXED DISODIUM
     Indication: Non-small cell lung cancer recurrent
     Dates: start: 20220531, end: 20220622
  9. VITAMINS NOS [Concomitant]
     Active Substance: VITAMINS
     Indication: Product used for unknown indication
     Dosage: 1 GRAM, EVERY DAY?(POWDER, METERED)
     Route: 048
     Dates: start: 20220623, end: 20220628
  10. VITAMINS NOS [Concomitant]
     Active Substance: VITAMINS
     Dosage: 1 GRAM, EVERY DAY?(POWDER, METERED)
     Route: 048
     Dates: start: 20220709, end: 20220712
  11. DECADRON [Concomitant]
     Active Substance: DEXAMETHASONE
     Indication: Product used for unknown indication
     Route: 048
     Dates: start: 20220623, end: 20220624
  12. CALCIUM CARBONATE\CHOLECALCIFEROL\MAGNESIUM CARBONATE [Concomitant]
     Active Substance: CALCIUM CARBONATE\CHOLECALCIFEROL\MAGNESIUM CARBONATE
     Indication: Product used for unknown indication
     Dosage: 2 DF, EVERYDAY
     Route: 048
     Dates: start: 20220623, end: 20220627
  13. CALCIUM CARBONATE\CHOLECALCIFEROL\MAGNESIUM CARBONATE [Concomitant]
     Active Substance: CALCIUM CARBONATE\CHOLECALCIFEROL\MAGNESIUM CARBONATE
     Dosage: 2 DF, EVERYDAY
     Route: 048
     Dates: start: 20220709, end: 20220715
  14. NEXIUM I.V. [Concomitant]
     Active Substance: ESOMEPRAZOLE SODIUM
     Indication: Product used for unknown indication
     Route: 048
     Dates: start: 20220622, end: 20220627
  15. NEXIUM I.V. [Concomitant]
     Active Substance: ESOMEPRAZOLE SODIUM
     Route: 048
     Dates: start: 20220708, end: 20220715
  16. LEVETIRACETAM [Concomitant]
     Active Substance: LEVETIRACETAM
     Indication: Product used for unknown indication
     Route: 048
     Dates: start: 20220621, end: 20220628
  17. LEVETIRACETAM [Concomitant]
     Active Substance: LEVETIRACETAM
     Route: 048
     Dates: start: 20220708, end: 20220708
  18. LEVETIRACETAM [Concomitant]
     Active Substance: LEVETIRACETAM
     Route: 048
     Dates: start: 20220709, end: 20220716
  19. GLYCYRON [GLYCYRRHIZIC ACID, AMMONIUM SALT] [Concomitant]
     Indication: Product used for unknown indication
     Route: 048
     Dates: start: 20220622, end: 20220628
  20. URSODIOL [Concomitant]
     Active Substance: URSODIOL
     Indication: Product used for unknown indication
     Route: 048
     Dates: start: 20220622, end: 20220628
  21. MAGNESIUM OXIDE [Concomitant]
     Active Substance: MAGNESIUM OXIDE
     Indication: Product used for unknown indication
     Route: 048
     Dates: start: 20220622, end: 20220628
  22. MAGNESIUM OXIDE [Concomitant]
     Active Substance: MAGNESIUM OXIDE
     Route: 048
     Dates: start: 20220708, end: 20220708
  23. MAGNESIUM OXIDE [Concomitant]
     Active Substance: MAGNESIUM OXIDE
     Route: 048
     Dates: start: 20220709, end: 20220716
  24. HEPARINOID [Concomitant]
     Indication: Product used for unknown indication
     Dosage: APPLICATION AT AN APPROPRIATE DOSE, SEVERAL TIMES A DAY, ON AFFECTEDSITE
     Route: 061
     Dates: start: 20220621, end: 20220621
  25. HEPARINOID [Concomitant]
     Dosage: APPLICATION AT AN APPROPRIATE DOSE, SEVERAL TIMES A DAY, ON AFFECTEDSITE
     Route: 061
     Dates: start: 20220625, end: 20220625
  26. HEPARINOID [Concomitant]
     Dosage: APPLICATION AT AN APPROPRIATE DOSE, SEVERAL TIMES A DAY, ON AFFECTEDSITE
     Route: 061
     Dates: start: 20220628, end: 20220628
  27. HEPARINOID [Concomitant]
     Dosage: APPLICATION AT AN APPROPRIATE DOSE, SEVERAL TIMES A DAY, ON AFFECTEDSITE
     Route: 061
     Dates: start: 20220708, end: 20220708
  28. HEPARINOID [Concomitant]
     Dosage: APPLICATION AT AN APPROPRIATE DOSE, SEVERAL TIMES A DAY, ON AFFECTEDSITE
     Route: 061
     Dates: start: 20220710, end: 20220710
  29. HEPARINOID [Concomitant]
     Dosage: APPLICATION AT AN APPROPRIATE DOSE, SEVERAL TIMES A DAY, ON AFFECTEDSITE
     Route: 061
     Dates: start: 20220712, end: 20220712
  30. HEPARINOID [Concomitant]
     Dosage: APPLICATION AT AN APPROPRIATE DOSE, SEVERAL TIMES A DAY, ON AFFECTEDSITE
     Route: 061
     Dates: start: 20220715, end: 20220715
  31. SULFAMETHOXAZOLE\TRIMETHOPRIM [Concomitant]
     Active Substance: SULFAMETHOXAZOLE\TRIMETHOPRIM
     Indication: Product used for unknown indication
     Route: 048
     Dates: start: 20220714, end: 20220716
  32. CLOBETASOL [Concomitant]
     Active Substance: CLOBETASOL
     Indication: Product used for unknown indication
     Dosage: APPLICATION AT AN APPROPRIATE DOSE, SEVERAL TIMES A DAY, ON AFFECTEDSITE
     Route: 061
     Dates: start: 20220712, end: 20220712
  33. CLOBETASOL [Concomitant]
     Active Substance: CLOBETASOL
     Dosage: APPLICATION AT AN APPROPRIATE DOSE, SEVERAL TIMES A DAY, ON AFFECTEDSITE
     Route: 061
     Dates: start: 20220715, end: 20220715
  34. CALONAL [Concomitant]
     Active Substance: ACETAMINOPHEN
     Indication: Pain
     Dosage: 600 MG, PRN , AS NECCESAARY
     Route: 048
     Dates: start: 20220623, end: 20220623

REACTIONS (7)
  - Hypotension [Unknown]
  - Neutrophil count decreased [Unknown]
  - Pyrexia [Recovered/Resolved]
  - Rash [Recovering/Resolving]
  - Immune-mediated adverse reaction [Unknown]
  - Prurigo [Unknown]
  - Cytokine release syndrome [Recovering/Resolving]

NARRATIVE: CASE EVENT DATE: 20220531
